FAERS Safety Report 6371787-6 (Version None)
Quarter: 2009Q3

REPORT INFORMATION
  Report Type: 
  Country: None (occurrence: None)
  Receive Date: 20090918
  Receipt Date: 20090918
  Transmission Date: 20100115
  Serious: Yes (Hospitalization)
  Sender: FDA-Public Use
  Company Number: None

PATIENT
  Sex: Female
  Weight: 54.6 kg

DRUGS (1)
  1. MEMANTINE HCL [Suspect]
     Dosage: 210 MG

REACTIONS (1)
  - CONVULSION [None]
